FAERS Safety Report 20792118 (Version 1)
Quarter: 2022Q2

REPORT INFORMATION
  Report Type: Spontaneous
  Country: US (occurrence: US)
  Receive Date: 20220505
  Receipt Date: 20220505
  Transmission Date: 20220721
  Serious: No
  Sender: FDA-Public Use
  Company Number: US-Blueprint Medicines Corporation-46

PATIENT
  Age: 62 Year
  Sex: Male

DRUGS (1)
  1. AYVAKIT [Suspect]
     Active Substance: AVAPRITINIB
     Indication: Chronic lymphocytic leukaemia
     Route: 048
     Dates: start: 20220222, end: 20220315

REACTIONS (7)
  - Eye swelling [Unknown]
  - Photosensitivity reaction [Unknown]
  - Faeces soft [Unknown]
  - Fatigue [Unknown]
  - Muscle spasms [Unknown]
  - Pain in extremity [Unknown]
  - Off label use [Unknown]
